FAERS Safety Report 4985959-6 (Version None)
Quarter: 2006Q2

REPORT INFORMATION
  Report Type: 
  Country: None (occurrence: None)
  Receive Date: 20060421
  Receipt Date: 20060405
  Transmission Date: 20061013
  Serious: Yes (Other)
  Sender: FDA-Public Use
  Company Number: DSA_28056_2006

PATIENT
  Age: 68 Year
  Sex: Male

DRUGS (9)
  1. MONO-TILDIEM [Suspect]
     Indication: HYPERTENSION
     Dosage: 300 MG PO
     Route: 048
  2. RIFADIN [Suspect]
     Indication: LYMPHADENITIS
     Dosage: DF PO
     Route: 048
  3. TRIATEC [Concomitant]
  4. MEDIATENSYL [Concomitant]
  5. APROVEL [Concomitant]
  6. LASILIX [Concomitant]
  7. NEORECORMON [Concomitant]
  8. PIRILENE [Concomitant]
  9. RIMIFON [Concomitant]

REACTIONS (2)
  - CONDITION AGGRAVATED [None]
  - HYPERTENSION [None]
